FAERS Safety Report 7304957-0 (Version None)
Quarter: 2011Q1

REPORT INFORMATION
  Report Type: 
  Country: None (occurrence: None)
  Receive Date: 20110222
  Receipt Date: 20110215
  Transmission Date: 20110831
  Serious: Yes (Hospitalization, Other)
  Sender: FDA-Public Use
  Company Number: BR-SANOFI-AVENTIS-2010SA044373

PATIENT
  Sex: Male
  Weight: 68 kg

DRUGS (5)
  1. LANTUS [Suspect]
     Indication: DIABETES MELLITUS
     Route: 058
     Dates: start: 20000101
  2. OPTIPEN [Suspect]
     Route: 058
     Dates: start: 20000101
  3. LOSARTAN [Concomitant]
     Indication: HYPERTENSION
     Route: 048
     Dates: start: 20090101
  4. AAS INFANTIL [Concomitant]
     Indication: PROPHYLAXIS
     Route: 048
     Dates: start: 20090601, end: 20090701
  5. AAS INFANTIL [Concomitant]
     Route: 048

REACTIONS (12)
  - QUADRIPLEGIA [None]
  - HALLUCINATION [None]
  - UNEVALUABLE EVENT [None]
  - OEDEMA PERIPHERAL [None]
  - DIABETIC COMA [None]
  - DIZZINESS [None]
  - CEREBROVASCULAR ACCIDENT [None]
  - HYPERTENSION [None]
  - SPEECH DISORDER [None]
  - MUSCULAR WEAKNESS [None]
  - BLOOD GLUCOSE FLUCTUATION [None]
  - CEREBRAL ISCHAEMIA [None]
